FAERS Safety Report 22542140 (Version 7)
Quarter: 2024Q1

REPORT INFORMATION
  Report Type: Spontaneous
  Country: US (occurrence: US)
  Receive Date: 20230609
  Receipt Date: 20240201
  Transmission Date: 20240410
  Serious: Yes (Other)
  Sender: FDA-Public Use
  Company Number: US-BRISTOL-MYERS SQUIBB COMPANY-2023-081694

PATIENT
  Age: 71 Year
  Sex: Male

DRUGS (1)
  1. LENALIDOMIDE [Suspect]
     Active Substance: LENALIDOMIDE
     Indication: Plasma cell myeloma
     Dosage: FREQUENCY: TAKE 1 CAPSULE BY MOUTH EVERY DAY ON DAYS 1-21 THEN 7 DAYS OFF OF A 28 DAY CYCLE
     Route: 048
     Dates: start: 20221024

REACTIONS (4)
  - Urinary tract infection [Unknown]
  - Diarrhoea [Recovering/Resolving]
  - Product supply issue [Recovered/Resolved]
  - Product dose omission issue [Recovered/Resolved]
